FAERS Safety Report 6471700-7 (Version None)
Quarter: 2009Q4

REPORT INFORMATION
  Report Type: 
  Country: None (occurrence: None)
  Receive Date: 20091203
  Receipt Date: 20080926
  Transmission Date: 20100525
  Serious: Yes (Hospitalization, Other)
  Sender: FDA-Public Use
  Company Number: US-ELI_LILLY_AND_COMPANY-US200803001558

PATIENT
  Sex: Female

DRUGS (4)
  1. FORTEO [Suspect]
     Indication: OSTEOPOROSIS
     Dosage: 20 UG, DAILY (1/D)
     Route: 058
     Dates: start: 20071101, end: 20080303
  2. FORTEO [Suspect]
     Dosage: 20 UG, UNK
     Dates: start: 20080101
  3. MULTI-VITAMIN [Concomitant]
  4. CALTRATE + D [Concomitant]
     Dosage: 600 MG, 2/D

REACTIONS (8)
  - APHONIA [None]
  - BALANCE DISORDER [None]
  - BLOOD CALCIUM INCREASED [None]
  - DIZZINESS [None]
  - FALL [None]
  - FATIGUE [None]
  - HIP FRACTURE [None]
  - SOMNOLENCE [None]
